FAERS Safety Report 15759442 (Version 1)
Quarter: 2018Q4

REPORT INFORMATION
  Report Type: Spontaneous
  Country: MX (occurrence: MX)
  Receive Date: 20181226
  Receipt Date: 20181226
  Transmission Date: 20190205
  Serious: Yes (Hospitalization, Other)
  Sender: FDA-Public Use
  Company Number: MX-ASTRAZENECA-2018SF68895

PATIENT
  Age: 31 Day
  Sex: Female
  Weight: 45 kg

DRUGS (2)
  1. TAGRISSO [Interacting]
     Active Substance: OSIMERTINIB
     Indication: LUNG NEOPLASM MALIGNANT
     Route: 048
  2. TAGRISSO [Suspect]
     Active Substance: OSIMERTINIB
     Indication: LUNG NEOPLASM MALIGNANT
     Route: 048
     Dates: start: 20181015, end: 20181115

REACTIONS (5)
  - Metastases to spine [Unknown]
  - Metastases to bone [Unknown]
  - Vomiting [Unknown]
  - Drug interaction [Unknown]
  - Gastrointestinal disorder [Unknown]
